FAERS Safety Report 17518845 (Version 11)
Quarter: 2021Q2

REPORT INFORMATION
  Report Type: Report from Study
  Country: CO (occurrence: CO)
  Receive Date: 20200309
  Receipt Date: 20210422
  Transmission Date: 20210716
  Serious: Yes (Hospitalization, Other)
  Sender: FDA-Public Use
  Company Number: NVSC2020CO053898

PATIENT
  Age: 88 Year
  Sex: Female
  Weight: 38 kg

DRUGS (13)
  1. SANDOSTATIN LAR DEPOT [Suspect]
     Active Substance: OCTREOTIDE ACETATE
     Dosage: 20 MG, QMO
     Route: 030
     Dates: start: 2019, end: 20210127
  2. CARVEDILOL. [Suspect]
     Active Substance: CARVEDILOL
     Indication: HYPERTENSION
     Dosage: UNK, Q12H
     Route: 048
     Dates: start: 201912
  3. FUROSEMIDE. [Concomitant]
     Active Substance: FUROSEMIDE
     Indication: PRODUCT USED FOR UNKNOWN INDICATION
     Dosage: UNK, QD (HALF TABLET)
     Route: 065
  4. SANDOSTATIN LAR DEPOT [Suspect]
     Active Substance: OCTREOTIDE ACETATE
  5. LOSARTAN POTASSIUM. [Suspect]
     Active Substance: LOSARTAN POTASSIUM
     Indication: PRODUCT USED FOR UNKNOWN INDICATION
     Dosage: UNK
     Route: 065
  6. SANDOSTATIN LAR DEPOT [Suspect]
     Active Substance: OCTREOTIDE ACETATE
     Indication: ACROMEGALY
     Dosage: 20 MG, QMO (AMPOULE)
     Route: 030
     Dates: start: 201810
  7. APIXABAN [Concomitant]
     Active Substance: APIXABAN
     Indication: ANTICOAGULANT THERAPY
     Dosage: 2.5 MG, Q12H
     Route: 048
     Dates: start: 201912
  8. AMLODIPINE BESILATE [Suspect]
     Active Substance: AMLODIPINE BESYLATE
     Indication: PRODUCT USED FOR UNKNOWN INDICATION
     Dosage: UNK
     Route: 065
  9. ATORVASTATIN CALCIUM. [Suspect]
     Active Substance: ATORVASTATIN CALCIUM
     Indication: BLOOD CHOLESTEROL INCREASED
     Dosage: 40 MG, QD (MANY YEARS AGO)
     Route: 048
  10. SPIRONOLACTONE. [Concomitant]
     Active Substance: SPIRONOLACTONE
     Indication: CARDIAC FAILURE
     Dosage: UNK, Q24H (HALD TABLET)
     Route: 048
     Dates: start: 202004
  11. ENALAPRIL [Concomitant]
     Active Substance: ENALAPRIL
     Indication: HYPERTENSION
     Dosage: 5 MG, Q24H (MANY YEARS AGO)
     Route: 048
  12. ATORVASTATIN CALCIUM. [Suspect]
     Active Substance: ATORVASTATIN CALCIUM
     Indication: BLOOD TRIGLYCERIDES
  13. CARVEDILOL. [Suspect]
     Active Substance: CARVEDILOL
     Dosage: 6.25 MG, Q24H
     Route: 065

REACTIONS (35)
  - Illness [Unknown]
  - Pyrexia [Unknown]
  - Anaemia [Unknown]
  - Abdominal pain [Unknown]
  - Aortic aneurysm [Unknown]
  - Blood potassium decreased [Unknown]
  - Asthenia [Unknown]
  - Hypoxia [Unknown]
  - Cardiac failure [Unknown]
  - Ovarian cancer [Unknown]
  - Moaning [Unknown]
  - Hypotension [Unknown]
  - Blood sodium decreased [Unknown]
  - Bacteraemia [Recovered/Resolved]
  - Bacteriuria [Unknown]
  - Product dose omission issue [Unknown]
  - Cardiac disorder [Unknown]
  - Gastritis [Unknown]
  - Malaise [Unknown]
  - Headache [Recovered/Resolved]
  - Headache [Not Recovered/Not Resolved]
  - Hypoaesthesia [Unknown]
  - Fatigue [Unknown]
  - General physical health deterioration [Unknown]
  - Dizziness [Unknown]
  - Infection [Unknown]
  - Inflammation [Not Recovered/Not Resolved]
  - Peripheral swelling [Not Recovered/Not Resolved]
  - Cholelithiasis [Unknown]
  - Abdominal pain upper [Unknown]
  - Thrombosis [Unknown]
  - Speech disorder [Unknown]
  - Back pain [Unknown]
  - Urinary tract infection [Recovered/Resolved]
  - Tension [Unknown]

NARRATIVE: CASE EVENT DATE: 201912
